FAERS Safety Report 4895936-1 (Version None)
Quarter: 2005Q4

REPORT INFORMATION
  Report Type: 
  Country: None (occurrence: None)
  Receive Date: 20051220
  Receipt Date: 20050223
  Transmission Date: 20060501
  Serious: Yes (Other)
  Sender: FDA-Public Use
  Company Number: US116236

PATIENT
  Age: 37 Year
  Sex: Male
  Weight: 118.9 kg

DRUGS (4)
  1. ENBREL [Suspect]
     Indication: PSORIASIS
     Dosage: 50 MG, 1 IN 1 WEEKS, SC
     Route: 058
     Dates: start: 20041101
  2. CLORAZEPATE DIPOTASSIUM [Concomitant]
  3. ESOMEPRAZOLE MAGNESIUM [Concomitant]
  4. LAMOTRIGINE [Concomitant]

REACTIONS (2)
  - PLATELET COUNT DECREASED [None]
  - WHITE BLOOD CELL COUNT DECREASED [None]
